FAERS Safety Report 7353543-5 (Version None)
Quarter: 2011Q1

REPORT INFORMATION
  Report Type: 
  Country: None (occurrence: None)
  Receive Date: 20110315
  Receipt Date: 20110308
  Transmission Date: 20110831
  Serious: Yes (Hospitalization)
  Sender: FDA-Public Use
  Company Number: US-ELI_LILLY_AND_COMPANY-US201102000583

PATIENT
  Sex: Female

DRUGS (10)
  1. OMEPRAZOLE [Concomitant]
  2. ENABLEX                            /01760402/ [Concomitant]
  3. ENTOCORT EC [Concomitant]
  4. ARICEPT [Concomitant]
  5. LIZINOPRIL [Concomitant]
  6. MOBIC [Concomitant]
  7. PLAVIX [Concomitant]
  8. LOVASTATIN [Concomitant]
  9. FORTEO [Suspect]
     Dosage: 20 UG, DAILY (1/D)
     Route: 058
     Dates: start: 20100217
  10. FORTEO [Suspect]
     Dosage: 20 UG, DAILY (1/D)
     Route: 058

REACTIONS (1)
  - PNEUMONIA ASPIRATION [None]
